FAERS Safety Report 12561527 (Version 1)
Quarter: 2016Q3

REPORT INFORMATION
  Report Type: Spontaneous
  Country: US (occurrence: US)
  Receive Date: 20160715
  Receipt Date: 20160715
  Transmission Date: 20161109
  Serious: No
  Sender: FDA-Public Use
  Company Number: US-GLAXOSMITHKLINE-US2016GSK096327

PATIENT
  Age: 47 Year
  Sex: Female

DRUGS (1)
  1. NUCALA [Suspect]
     Active Substance: MEPOLIZUMAB
     Indication: ASTHMA
     Dosage: UNK

REACTIONS (5)
  - Chest pain [Recovered/Resolved]
  - Hyperaesthesia [Not Recovered/Not Resolved]
  - Bedridden [Recovered/Resolved]
  - Acne [Not Recovered/Not Resolved]
  - Chest discomfort [Recovered/Resolved]
